FAERS Safety Report 18381152 (Version 2)
Quarter: 2021Q1

REPORT INFORMATION
  Report Type: Spontaneous
  Country: CA (occurrence: CA)
  Receive Date: 20201014
  Receipt Date: 20210111
  Transmission Date: 20210419
  Serious: No
  Sender: FDA-Public Use
  Company Number: US-ASTRAZENECA-2020SF20772

PATIENT
  Age: 60 Year
  Sex: Female
  Weight: 97.5 kg

DRUGS (5)
  1. SUBOXONE [Concomitant]
     Active Substance: BUPRENORPHINE HYDROCHLORIDE\NALOXONE HYDROCHLORIDE
  2. PREDNISONE. [Concomitant]
     Active Substance: PREDNISONE
  3. CALQUENCE [Suspect]
     Active Substance: ACALABRUTINIB
     Indication: CHRONIC LYMPHOCYTIC LEUKAEMIA
     Route: 048
     Dates: start: 202008
  4. GABAPENTIN. [Concomitant]
     Active Substance: GABAPENTIN
  5. IBRUTINIB [Concomitant]
     Active Substance: IBRUTINIB

REACTIONS (12)
  - Musculoskeletal stiffness [Unknown]
  - Product dose omission issue [Unknown]
  - Tremor [Recovering/Resolving]
  - Headache [Recovering/Resolving]
  - Sleep disorder [Unknown]
  - Hypohidrosis [Recovering/Resolving]
  - Respiratory tract congestion [Unknown]
  - Panic disorder [Recovering/Resolving]
  - Hyperventilation [Recovering/Resolving]
  - Nervousness [Recovering/Resolving]
  - Muscle strain [Unknown]
  - Feeling abnormal [Unknown]

NARRATIVE: CASE EVENT DATE: 20200913
